FAERS Safety Report 10916542 (Version 2)
Quarter: 2015Q2

REPORT INFORMATION
  Report Type: Spontaneous
  Country: US (occurrence: US)
  Receive Date: 20150316
  Receipt Date: 20150524
  Transmission Date: 20150821
  Serious: No
  Sender: FDA-Public Use
  Company Number: US-JNJFOC-20130503202

PATIENT
  Age: 65 Year
  Sex: Male
  Weight: 88.45 kg

DRUGS (1)
  1. ZYTIGA [Suspect]
     Active Substance: ABIRATERONE ACETATE
     Indication: BONE CANCER
     Route: 048
     Dates: start: 20120423

REACTIONS (3)
  - Weight increased [Recovered/Resolved]
  - Product use issue [Not Recovered/Not Resolved]
  - Prostatic specific antigen decreased [Not Recovered/Not Resolved]

NARRATIVE: CASE EVENT DATE: 20120323
